FAERS Safety Report 6815300-5 (Version None)
Quarter: 2010Q3

REPORT INFORMATION
  Report Type: 
  Country: None (occurrence: None)
  Receive Date: 20100701
  Receipt Date: 20100701
  Transmission Date: 20110219
  Serious: Yes (Life-Threatening, Hospitalization)
  Sender: FDA-Public Use
  Company Number: None

PATIENT

DRUGS (1)
  1. VICTOZA [Suspect]
     Indication: TYPE 1 DIABETES MELLITUS
     Dosage: 0.6MG QD SQ
     Route: 058
     Dates: start: 20100501, end: 20100626

REACTIONS (2)
  - PANCREATITIS [None]
  - SHOCK [None]
